FAERS Safety Report 4847801-3 (Version None)
Quarter: 2005Q4

REPORT INFORMATION
  Report Type: 
  Country: None (occurrence: None)
  Receive Date: 20051205
  Receipt Date: 20051123
  Transmission Date: 20060501
  Serious: No
  Sender: FDA-Public Use
  Company Number: RS005645-CDN

PATIENT
  Age: 80 Year
  Sex: Female

DRUGS (1)
  1. RABEPRAZOLE SODIUM [Suspect]
     Dosage: ORAL
     Route: 048

REACTIONS (3)
  - CORNEAL DISORDER [None]
  - RETINAL DETACHMENT [None]
  - VISUAL ACUITY REDUCED [None]
